FAERS Safety Report 8219328-2 (Version None)
Quarter: 2012Q1

REPORT INFORMATION
  Report Type: 
  Country: None (occurrence: None)
  Receive Date: 20120319
  Receipt Date: 20120308
  Transmission Date: 20120608
  Serious: Yes (Other)
  Sender: FDA-Public Use
  Company Number: DE-ELI_LILLY_AND_COMPANY-DE201203002503

PATIENT
  Sex: Male

DRUGS (1)
  1. BYDUREON [Suspect]
     Dosage: UNK UNK, WEEKLY (1/W)
     Route: 058

REACTIONS (1)
  - HAEMATEMESIS [None]
